FAERS Safety Report 21674792 (Version 1)
Quarter: 2022Q4

REPORT INFORMATION
  Report Type: Spontaneous
  Country: US (occurrence: None)
  Receive Date: 20221201
  Receipt Date: 20221201
  Transmission Date: 20230113
  Serious: Yes (Hospitalization)
  Sender: FDA-Public Use
  Company Number: None

PATIENT
  Age: 80 Year
  Sex: Male
  Weight: 83.25 kg

DRUGS (14)
  1. REVLIMID [Suspect]
     Active Substance: LENALIDOMIDE
     Indication: Plasma cell myeloma
     Dosage: FREQUENCY : DAILY;?
     Route: 048
     Dates: start: 20221108
  2. hydrocodone 5 mg-acetaminophen 325 mg tablet [Concomitant]
  3. ACYCLOVIR [Concomitant]
     Active Substance: ACYCLOVIR
  4. Benadryl 25 mg capsule [Concomitant]
  5. Colace 100 mg capsule [Concomitant]
  6. Compazine 10 mg tablet [Concomitant]
  7. DEXAMETHASONE [Concomitant]
     Active Substance: DEXAMETHASONE
  8. Lexapro 10 mg tablet [Concomitant]
  9. t	Miralax 17 gram oral powder packetClick for context-specific patient [Concomitant]
  10. oxycodone-acetaminophen 5 mg-325 mg tabletClick for context-specific p [Concomitant]
  11. PreserVision AREDS 2,148 mcg-113 mg-45 mg-17.4 mg tablet [Concomitant]
  12. Revlimid 25 mg capsule [Concomitant]
  13. tramadol 50 mg tablet [Concomitant]
  14. Tylenol Extra Strength 500 mg tablet [Concomitant]

REACTIONS (1)
  - Thrombosis [None]

NARRATIVE: CASE EVENT DATE: 20221201
